FAERS Safety Report 4996540-7 (Version None)
Quarter: 2006Q2

REPORT INFORMATION
  Report Type: 
  Country: None (occurrence: None)
  Receive Date: 20060505
  Receipt Date: 20060421
  Transmission Date: 20061013
  Serious: Yes (Hospitalization)
  Sender: FDA-Public Use
  Company Number: PAR_0620_2006

PATIENT
  Age: 57 Year
  Sex: Female

DRUGS (1)
  1. VALPROIC ACID [Suspect]
     Indication: EPILEPSY
     Dosage: 500 MG BID

REACTIONS (5)
  - CARBOHYDRATE ANTIGEN 125 INCREASED [None]
  - CARDIAC FAILURE CONGESTIVE [None]
  - INFLAMMATION [None]
  - LYMPHOCYTIC INFILTRATION [None]
  - PLEURAL EFFUSION [None]
